FAERS Safety Report 13360253 (Version 1)
Quarter: 2017Q1

REPORT INFORMATION
  Report Type: Spontaneous
  Country: US (occurrence: US)
  Receive Date: 20170322
  Receipt Date: 20170322
  Transmission Date: 20170429
  Serious: No
  Sender: FDA-Public Use
  Company Number: US-PFIZER INC-2017119874

PATIENT
  Age: 54 Year
  Sex: Female
  Weight: 70 kg

DRUGS (3)
  1. PRISTIQ EXTENDED-RELEASE [Suspect]
     Active Substance: DESVENLAFAXINE SUCCINATE
     Indication: APATHY
     Dosage: 100 MG, 1X/DAY
     Route: 048
     Dates: start: 201701, end: 20170313
  2. PRISTIQ EXTENDED-RELEASE [Suspect]
     Active Substance: DESVENLAFAXINE SUCCINATE
     Indication: DEPRESSED MOOD
     Dosage: 50 MG, UNK
     Dates: start: 2015
  3. LEVOTHYROXINE. [Concomitant]
     Active Substance: LEVOTHYROXINE
     Indication: THYROID DISORDER
     Dosage: 88 UG, 1X/DAY
     Dates: start: 2014

REACTIONS (5)
  - Insomnia [Unknown]
  - Withdrawal syndrome [Not Recovered/Not Resolved]
  - Feeling abnormal [Unknown]
  - Crying [Unknown]
  - Nervousness [Unknown]

NARRATIVE: CASE EVENT DATE: 20170315
